FAERS Safety Report 5145658-7 (Version None)
Quarter: 2006Q4

REPORT INFORMATION
  Report Type: 
  Country: None (occurrence: None)
  Receive Date: 20061031
  Receipt Date: 20061018
  Transmission Date: 20070319
  Serious: Yes (Death)
  Sender: FDA-Public Use
  Company Number: 2006BH014081

PATIENT
  Sex: Male

DRUGS (1)
  1. DIANEAL [Suspect]
     Indication: RENAL FAILURE CHRONIC
     Dosage: 6 L; IP
     Route: 033

REACTIONS (5)
  - CARDIAC ARREST [None]
  - DIALYSIS [None]
  - NAUSEA [None]
  - SCROTAL SWELLING [None]
  - VOMITING [None]
